FAERS Safety Report 9720544 (Version 1)
Quarter: 2013Q4

REPORT INFORMATION
  Report Type: Report from Study
  Country: GB (occurrence: GB)
  Receive Date: 20131129
  Receipt Date: 20131129
  Transmission Date: 20140711
  Serious: Yes (Hospitalization, Other)
  Sender: FDA-Public Use
  Company Number: GB-JNJFOC-20131113694

PATIENT
  Age: 79 Year
  Sex: Female
  Weight: 70 kg

DRUGS (10)
  1. USTEKINUMAB [Suspect]
     Indication: PSORIASIS
     Route: 058
     Dates: start: 20130109, end: 20130116
  2. OMEPRAZOLE [Concomitant]
     Route: 065
     Dates: start: 20100715
  3. CICLOSPORIN [Concomitant]
     Route: 065
     Dates: start: 20121010, end: 20130616
  4. PREDNISOLONE [Concomitant]
     Route: 065
     Dates: start: 20130116
  5. DOSULEPIN [Concomitant]
     Route: 065
     Dates: start: 20130417
  6. CO-PROXAMOL [Concomitant]
     Route: 065
     Dates: start: 20130819
  7. ALENDRONIC ACID [Concomitant]
     Route: 065
     Dates: start: 20130715
  8. COLECALCIFEROL [Concomitant]
     Route: 065
     Dates: start: 20130715
  9. OXYCODONE [Concomitant]
     Route: 065
     Dates: start: 20130715, end: 20130815
  10. TAZOCIN [Concomitant]
     Route: 065
     Dates: start: 20130715, end: 20130716

REACTIONS (5)
  - Dizziness [Unknown]
  - Fall [Recovered/Resolved]
  - Pelvic fracture [Recovered/Resolved]
  - Localised infection [Unknown]
  - Urinary tract infection [Recovered/Resolved]
